FAERS Safety Report 8170378-4 (Version None)
Quarter: 2012Q1

REPORT INFORMATION
  Report Type: 
  Country: None (occurrence: None)
  Receive Date: 20120228
  Receipt Date: 20120222
  Transmission Date: 20120608
  Serious: Yes (Congenital Anomaly, Other)
  Sender: FDA-Public Use
  Company Number: US-PFIZER INC-2012048292

PATIENT
  Sex: Male
  Weight: 3.5 kg

DRUGS (3)
  1. MULTI-VITAMINS [Concomitant]
     Dosage: DAILY
     Route: 064
     Dates: start: 20051121
  2. CYANOCOBALAMIN [Concomitant]
     Dosage: UNK
     Route: 064
     Dates: start: 20051215
  3. ZOLOFT [Suspect]
     Dosage: 50 MG, UNK
     Route: 064
     Dates: start: 20051205

REACTIONS (2)
  - PHIMOSIS [None]
  - MATERNAL EXPOSURE TIMING UNSPECIFIED [None]
